FAERS Safety Report 4391270-7 (Version None)
Quarter: 2004Q2

REPORT INFORMATION
  Report Type: 
  Country: None (occurrence: None)
  Receive Date: 20040621
  Receipt Date: 20031029
  Transmission Date: 20050107
  Serious: Yes (Other)
  Sender: FDA-Public Use
  Company Number: USA-2003-0006178

PATIENT
  Age: 53 Year
  Sex: Male

DRUGS (9)
  1. OXYCONTIN [Suspect]
     Indication: PAIN
     Dosage: 10 MG, Q12H
     Dates: start: 20000522
  2. BACLOFEN [Concomitant]
  3. LORTAB [Concomitant]
  4. NEURONTIN [Concomitant]
  5. VALIUM [Concomitant]
  6. LOTREL [Concomitant]
  7. LASIX [Concomitant]
  8. HYTRIN [Concomitant]
  9. ZANAFLEX [Concomitant]

REACTIONS (36)
  - ABDOMINAL PAIN [None]
  - ACTIVITIES OF DAILY LIVING IMPAIRED [None]
  - AGITATION [None]
  - ALOPECIA [None]
  - ANXIETY [None]
  - BURNING SENSATION [None]
  - CHILLS [None]
  - DEPRESSION [None]
  - DIARRHOEA [None]
  - DIFFICULTY IN WALKING [None]
  - DRUG DEPENDENCE [None]
  - DRUG WITHDRAWAL SYNDROME [None]
  - FALL [None]
  - HEADACHE [None]
  - HYPERHIDROSIS [None]
  - HYPOAESTHESIA [None]
  - INSOMNIA [None]
  - IRRITABILITY [None]
  - LOSS OF CONSCIOUSNESS [None]
  - MUSCLE CRAMP [None]
  - MUSCLE SPASMS [None]
  - MYDRIASIS [None]
  - NEUROPATHY PERIPHERAL [None]
  - NIGHTMARE [None]
  - PAIN [None]
  - PAIN EXACERBATED [None]
  - PAIN IN EXTREMITY [None]
  - POLYDIPSIA [None]
  - POLYURIA [None]
  - RHONCHI [None]
  - ROAD TRAFFIC ACCIDENT [None]
  - SKIN INFECTION [None]
  - SLEEP DISORDER [None]
  - SWELLING [None]
  - VICTIM OF CRIME [None]
  - VOMITING [None]
